FAERS Safety Report 23062369 (Version 1)
Quarter: 2023Q4

REPORT INFORMATION
  Report Type: Spontaneous
  Country: US (occurrence: US)
  Receive Date: 20231013
  Receipt Date: 20231013
  Transmission Date: 20240109
  Serious: No
  Sender: FDA-Public Use
  Company Number: US-PFIZER INC-202300325210

PATIENT
  Age: 57 Year
  Sex: Female

DRUGS (15)
  1. XELJANZ XR [Suspect]
     Active Substance: TOFACITINIB CITRATE
     Dosage: 11 MG, DAILY
     Route: 048
     Dates: start: 202306
  2. CALCITRIOL [Concomitant]
     Active Substance: CALCITRIOL
     Dosage: UNK
  3. PROPRANOLOL HYDROCHLORIDE [Concomitant]
     Active Substance: PROPRANOLOL HYDROCHLORIDE
     Dosage: UNK
  4. ALCLOMETASONE DIPROPIONATE [Concomitant]
     Active Substance: ALCLOMETASONE DIPROPIONATE
     Dosage: UNK
  5. ESTRADIOL [Concomitant]
     Active Substance: ESTRADIOL
     Dosage: CREAM/APPL
  6. NIFEDIPINE [Concomitant]
     Active Substance: NIFEDIPINE
     Dosage: UNK
  7. BACLOFEN [Concomitant]
     Active Substance: BACLOFEN
     Dosage: UNK
  8. SOMATULINE DEPOT [Concomitant]
     Active Substance: LANREOTIDE ACETATE
     Dosage: 120 MG/0.5 SYRINGE
  9. SUMATRIPTAN SUCCINATE [Concomitant]
     Active Substance: SUMATRIPTAN SUCCINATE
     Dosage: UNK
  10. OXYCODONE HYDROCHLORIDE [Concomitant]
     Active Substance: OXYCODONE HYDROCHLORIDE
     Dosage: UNK
  11. KEPPRA [Concomitant]
     Active Substance: LEVETIRACETAM
     Dosage: UNK
  12. ONDANSETRON HYDROCHLORIDE [Concomitant]
     Active Substance: ONDANSETRON HYDROCHLORIDE
     Dosage: UNK
  13. VENLAFAXINE HCL [Concomitant]
     Active Substance: VENLAFAXINE HYDROCHLORIDE
     Dosage: UNK
  14. PLAQUENIL [Concomitant]
     Active Substance: HYDROXYCHLOROQUINE SULFATE
     Dosage: UNK
  15. OMEPRAZOLE [Concomitant]
     Active Substance: OMEPRAZOLE
     Dosage: UNK

REACTIONS (1)
  - Urinary tract infection bacterial [Not Recovered/Not Resolved]
